FAERS Safety Report 16065683 (Version 1)
Quarter: 2019Q1

REPORT INFORMATION
  Report Type: Spontaneous
  Country: CN (occurrence: CN)
  Receive Date: 20190313
  Receipt Date: 20190313
  Transmission Date: 20190418
  Serious: Yes (Hospitalization)
  Sender: FDA-Public Use
  Company Number: CN-ABBVIE-19K-035-2701153-00

PATIENT
  Age: 30 Year
  Sex: Female

DRUGS (2)
  1. HUMIRA [Suspect]
     Active Substance: ADALIMUMAB
     Indication: ANKYLOSING SPONDYLITIS
     Route: 058
     Dates: start: 201810, end: 201811
  2. HUMIRA [Suspect]
     Active Substance: ADALIMUMAB
     Route: 058
     Dates: start: 20190108, end: 201903

REACTIONS (4)
  - Skin ulcer [Unknown]
  - Skin ulcer [Recovered/Resolved]
  - Abscess limb [Recovered/Resolved]
  - Bone abscess [Recovered/Resolved]

NARRATIVE: CASE EVENT DATE: 201811
